FAERS Safety Report 4305293-7 (Version None)
Quarter: 2004Q1

REPORT INFORMATION
  Report Type: 
  Country: None (occurrence: None)
  Receive Date: 20040226
  Receipt Date: 20030228
  Transmission Date: 20041129
  Serious: Yes (Hospitalization)
  Sender: FDA-Public Use
  Company Number: US-BRISTOL-MYERS SQUIBB COMPANY-12198248

PATIENT
  Age: 50 Year
  Sex: Female

DRUGS (3)
  1. TAXOL [Suspect]
     Indication: BREAST CANCER
     Route: 042
     Dates: start: 20030123, end: 20030123
  2. THYROID TAB [Concomitant]
  3. COUMADIN [Concomitant]
     Route: 048

REACTIONS (1)
  - PNEUMONITIS [None]
